FAERS Safety Report 21200033 (Version 1)
Quarter: 2022Q3

REPORT INFORMATION
  Report Type: Spontaneous
  Country: US (occurrence: None)
  Receive Date: 20220810
  Receipt Date: 20220810
  Transmission Date: 20221026
  Serious: Yes (Disabling)
  Sender: FDA-Public Use
  Company Number: None

PATIENT
  Age: 23 Year
  Sex: Female
  Weight: 51.75 kg

DRUGS (2)
  1. MIRVASO [Suspect]
     Active Substance: BRIMONIDINE TARTRATE
     Indication: Rosacea
     Route: 061
     Dates: start: 20220803, end: 20220808
  2. Ubrelvy (as needed) [Concomitant]

REACTIONS (4)
  - Flushing [None]
  - Burning sensation [None]
  - Impaired work ability [None]
  - Erythema [None]

NARRATIVE: CASE EVENT DATE: 20220808
